FAERS Safety Report 5676111-X (Version None)
Quarter: 2008Q1

REPORT INFORMATION
  Report Type: 
  Country: None (occurrence: None)
  Receive Date: 20080321
  Receipt Date: 20080313
  Transmission Date: 20080703
  Serious: Yes (Other)
  Sender: FDA-Public Use
  Company Number: BR-TEVA-168846ISR

PATIENT
  Age: 26 Year
  Sex: Female

DRUGS (8)
  1. ETOPOSIDE [Suspect]
  2. DOXORUBICIN HCL [Suspect]
  3. BLEOMYCIN SULFATE [Suspect]
  4. CYTARABINE [Suspect]
  5. VINCRISTINE [Suspect]
  6. PREDNISONE TAB [Suspect]
  7. CARMUSTINE [Suspect]
  8. MELPHALAN [Suspect]

REACTIONS (3)
  - AMENORRHOEA [None]
  - OVARIAN FAILURE [None]
  - PULMONARY EMBOLISM [None]
